FAERS Safety Report 15432191 (Version 1)
Quarter: 2018Q3

REPORT INFORMATION
  Report Type: Spontaneous
  Country: US (occurrence: US)
  Receive Date: 20180926
  Receipt Date: 20180926
  Transmission Date: 20181010
  Serious: Yes (Death, Other)
  Sender: FDA-Public Use
  Company Number: US-GE HEALTHCARE LIFE SCIENCES-2018CSU003778

PATIENT
  Age: 85 Year
  Sex: Male

DRUGS (3)
  1. MYOVIEW [Suspect]
     Active Substance: TECHNETIUM TC-99M TETROFOSMIN
     Indication: TROPONIN INCREASED
     Dosage: 1628 MBQ, SINGLE
     Route: 065
     Dates: start: 20160601, end: 20160601
  2. MYOVIEW [Suspect]
     Active Substance: TECHNETIUM TC-99M TETROFOSMIN
     Dosage: 1232.1 MBQ, SINGLE
     Route: 065
     Dates: start: 20160601, end: 20160601
  3. TECHNETIUM TC 99M [Concomitant]
     Active Substance: TECHNETIUM TC-99M

REACTIONS (2)
  - Seizure [Unknown]
  - Death [Fatal]

NARRATIVE: CASE EVENT DATE: 20160601
